FAERS Safety Report 9716699 (Version 1)
Quarter: 2013Q4

REPORT INFORMATION
  Report Type: Spontaneous
  Country: IT (occurrence: IT)
  Receive Date: 20131127
  Receipt Date: 20131127
  Transmission Date: 20140711
  Serious: Yes (Life-Threatening)
  Sender: FDA-Public Use
  Company Number: IT-TEVA-444952ISR

PATIENT
  Age: 21 Year
  Sex: Male

DRUGS (3)
  1. MONTELUKAST [Suspect]
     Indication: ASTHMA
     Dosage: 10 MILLIGRAM DAILY;
     Route: 048
     Dates: start: 20131006, end: 20131106
  2. RUPAFIN [Suspect]
     Indication: ASTHMA
     Dosage: 10 MILLIGRAM DAILY;
     Route: 048
     Dates: start: 20131006, end: 20131107
  3. ROLENIUM [Suspect]
     Indication: ASTHMA
     Dosage: 2 DOSAGE FORMS DAILY;
     Route: 055
     Dates: start: 20131006, end: 20131107

REACTIONS (2)
  - Laryngospasm [Recovered/Resolved]
  - Drug ineffective [Recovered/Resolved]
